FAERS Safety Report 10211645 (Version 3)
Quarter: 2014Q3

REPORT INFORMATION
  Report Type: Spontaneous
  Country: JP (occurrence: JP)
  Receive Date: 20140602
  Receipt Date: 20140717
  Transmission Date: 20150326
  Serious: Yes (Hospitalization)
  Sender: FDA-Public Use
  Company Number: JP-CUBIST PHARMACEUTICAL, INC.-2014CBST000686

PATIENT

DRUGS (2)
  1. CUBICIN [Suspect]
     Active Substance: DAPTOMYCIN
     Indication: COMMUNITY ACQUIRED INFECTION
     Dosage: 350 MG, Q24H
     Route: 042
  2. CUBICIN [Suspect]
     Active Substance: DAPTOMYCIN
     Indication: STAPHYLOCOCCAL BACTERAEMIA

REACTIONS (5)
  - Muscle disorder [Recovered/Resolved]
  - Respiratory failure [Unknown]
  - Spondylitis [Unknown]
  - Loss of consciousness [Unknown]
  - Cerebral artery embolism [Unknown]
